FAERS Safety Report 7483027-5 (Version None)
Quarter: 2011Q2

REPORT INFORMATION
  Report Type: 
  Country: None (occurrence: None)
  Receive Date: 20110516
  Receipt Date: 20110415
  Transmission Date: 20111010
  Serious: Yes (Hospitalization)
  Sender: FDA-Public Use
  Company Number: US-BAYER-201034028NA

PATIENT
  Age: 27 Year
  Sex: Female
  Weight: 77.098 kg

DRUGS (1)
  1. YASMIN [Suspect]
     Indication: ORAL CONTRACEPTION
     Dosage: UNK
     Route: 048
     Dates: start: 20050901, end: 20080301

REACTIONS (8)
  - VOMITING [None]
  - ABDOMINAL PAIN [None]
  - NAUSEA [None]
  - DEPRESSION [None]
  - ANXIETY [None]
  - PAIN [None]
  - CHOLECYSTITIS ACUTE [None]
  - CHOLELITHIASIS [None]
